FAERS Safety Report 9645738 (Version 1)
Quarter: 2013Q4

REPORT INFORMATION
  Report Type: Report from Study
  Country: US (occurrence: US)
  Receive Date: 20131025
  Receipt Date: 20131025
  Transmission Date: 20140711
  Serious: Yes (Other)
  Sender: FDA-Public Use
  Company Number: US-PFIZER INC-2013300123

PATIENT
  Age: 54 Year
  Sex: Male

DRUGS (7)
  1. BEVACIZUMAB [Suspect]
     Indication: COLON CANCER
     Dosage: 5 MG/KG, CYCLIC (338.5 MG) EVERY 14 DAYS
     Route: 042
     Dates: start: 20130709
  2. LEUCOVORIN CALCIUM [Suspect]
     Indication: COLON CANCER
     Dosage: 400 MG/M2, CYCLIC (720 MG) EVERY 14 DAYS
     Route: 042
     Dates: start: 20130709
  3. LISINOPRIL [Concomitant]
     Dosage: UNK
     Dates: start: 2005
  4. FLUOROURACIL [Suspect]
     Indication: COLON CANCER
     Dosage: 2400 MG/M2, CYCLIC (4320 MG) EVERY 14 DAYS
     Route: 042
     Dates: start: 20130709
  5. FLUOROURACIL [Suspect]
     Dosage: 400 MG/M2, CYCLIC (720 MG) EVERY 14 DAYS
     Route: 040
  6. OXALIPLATIN [Suspect]
     Indication: COLON CANCER
     Dosage: 85 MG/M2, CYCLIC (153 MG) IN CYCLE 1 AND 2
     Route: 042
     Dates: start: 20130709
  7. IRINOTECAN HCL [Suspect]
     Indication: COLON CANCER
     Dosage: 180 MG/M2, CYCLIC (324 MG) IN CYCLE 3 AND 4
     Route: 042
     Dates: start: 20130806

REACTIONS (1)
  - Hypertension [Recovered/Resolved]
